FAERS Safety Report 4977451-X (Version None)
Quarter: 2006Q2

REPORT INFORMATION
  Report Type: 
  Country: None (occurrence: None)
  Receive Date: 20060413
  Receipt Date: 20060331
  Transmission Date: 20061013
  Serious: Yes (Life-Threatening, Hospitalization, Other)
  Sender: FDA-Public Use
  Company Number: A-CH2006-11909

PATIENT
  Age: 18 Year
  Sex: Male

DRUGS (2)
  1. TRACLEER [Suspect]
     Indication: PULMONARY HYPERTENSION
     Dosage: 93.7 MG, ORAL
     Route: 048
     Dates: start: 20050201, end: 20060112
  2. ASPIRIN [Concomitant]

REACTIONS (2)
  - HYPERKALAEMIA [None]
  - HYPOTENSION [None]
